FAERS Safety Report 10136674 (Version 4)
Quarter: 2025Q1

REPORT INFORMATION
  Report Type: Report from Study
  Country: RS (occurrence: RS)
  Receive Date: 20140429
  Receipt Date: 20250102
  Transmission Date: 20250408
  Serious: Yes (Hospitalization, Other)
  Sender: JOHNSON AND JOHNSON
  Company Number: RS-JNJFOC-20140413845

PATIENT
  Age: 23 Year
  Sex: Female
  Weight: 55 kg

DRUGS (12)
  1. STELARA [Suspect]
     Active Substance: USTEKINUMAB
     Indication: Psoriasis
     Route: 058
     Dates: start: 20140403, end: 20140715
  2. STELARA [Suspect]
     Active Substance: USTEKINUMAB
     Indication: Psoriatic arthropathy
  3. IRON [Concomitant]
     Active Substance: IRON
     Route: 042
     Dates: start: 20140416
  4. METHOTREXATE [Concomitant]
     Active Substance: METHOTREXATE
     Indication: Psoriatic arthropathy
     Route: 048
     Dates: start: 201311, end: 20140409
  5. FERROVIN [Concomitant]
     Indication: Anaemia
     Route: 042
     Dates: start: 20140416, end: 20140416
  6. HEFEROL [Concomitant]
     Indication: Anaemia
     Route: 048
     Dates: start: 20140320, end: 20140415
  7. METHYLPREDNISOLONE [Concomitant]
     Active Substance: METHYLPREDNISOLONE
     Indication: Psoriatic arthropathy
     Route: 042
     Dates: start: 20140320, end: 20140326
  8. METHYLPREDNISOLONE [Concomitant]
     Active Substance: METHYLPREDNISOLONE
     Indication: Skin lesion inflammation
  9. ALBUMIN HUMAN [Concomitant]
     Active Substance: ALBUMIN HUMAN
     Indication: Hypoalbuminaemia
     Route: 042
     Dates: start: 20140418
  10. LONGACEPH [Concomitant]
     Indication: Staphylococcal infection
     Route: 042
     Dates: start: 20140318, end: 20140327
  11. LONGACEPH [Concomitant]
     Indication: Skin lesion inflammation
  12. CEPHALEXIN [Concomitant]
     Active Substance: CEPHALEXIN
     Indication: Prophylaxis
     Route: 048
     Dates: start: 20140327, end: 20140408

REACTIONS (3)
  - Pneumonia [Recovered/Resolved]
  - Staphylococcal infection [Recovered/Resolved]
  - Sepsis [Recovered/Resolved]

NARRATIVE: CASE EVENT DATE: 20140414
